FAERS Safety Report 8135942-7 (Version None)
Quarter: 2012Q1

REPORT INFORMATION
  Report Type: 
  Country: None (occurrence: None)
  Receive Date: 20120214
  Receipt Date: 20120209
  Transmission Date: 20120608
  Serious: Yes (Death)
  Sender: FDA-Public Use
  Company Number: CL-PFIZER INC-2012036820

PATIENT
  Age: 62 Year
  Sex: Male

DRUGS (3)
  1. TRAMADOL [Concomitant]
  2. VARENICLINE TARTRATE [Suspect]
     Indication: SMOKING CESSATION THERAPY
     Dosage: 0.5 MG, 1X/DAY
     Route: 048
     Dates: start: 20111001, end: 20111001
  3. PREGABALIN [Suspect]

REACTIONS (1)
  - DEATH [None]
